FAERS Safety Report 9023466 (Version 1)
Quarter: 2013Q1

REPORT INFORMATION
  Report Type: Spontaneous
  Country: US (occurrence: US)
  Receive Date: 20130121
  Receipt Date: 20130121
  Transmission Date: 20140127
  Serious: No
  Sender: FDA-Public Use
  Company Number: US-OPTIMER PHARMACEUTICALS, INC.-20120097

PATIENT
  Age: 80 None
  Sex: Female
  Weight: 113.38 kg

DRUGS (6)
  1. DIFICID [Suspect]
     Indication: CLOSTRIDIUM DIFFICILE COLITIS
     Dosage: 200 MG, BID, 3 WEEK COURSE
     Route: 048
     Dates: start: 201205, end: 201205
  2. ATENOLOL [Concomitant]
     Indication: HYPERTENSION
     Dosage: UNK
     Route: 048
  3. INSULIN [Concomitant]
     Indication: DIABETES MELLITUS
     Dosage: UNK
     Route: 058
  4. CITALOPRAM [Concomitant]
     Indication: DEPRESSION
     Dosage: UNK
     Route: 048
  5. LISINOPRIL [Concomitant]
     Indication: HYPERTENSION
     Dosage: UNK
     Route: 048
  6. QUESTRAN [Concomitant]
     Indication: CLOSTRIDIUM DIFFICILE COLITIS
     Dosage: UNK
     Route: 048

REACTIONS (3)
  - Clostridium difficile colitis [Not Recovered/Not Resolved]
  - Disease recurrence [Not Recovered/Not Resolved]
  - Off label use [Unknown]
